FAERS Safety Report 6120469-4 (Version None)
Quarter: 2009Q1

REPORT INFORMATION
  Report Type: 
  Country: None (occurrence: None)
  Receive Date: 20090317
  Receipt Date: 20090312
  Transmission Date: 20090719
  Serious: No
  Sender: FDA-Public Use
  Company Number: US-JNJFOC-20090303343

PATIENT
  Sex: Male
  Weight: 83.92 kg

DRUGS (8)
  1. FENTANYL TRANSDERMAL SYSTEM [Suspect]
     Route: 062
  2. FENTANYL TRANSDERMAL SYSTEM [Suspect]
     Indication: BACK PAIN
     Route: 062
  3. HYDROCHLOROTHIAZIDE [Concomitant]
     Indication: HYPERTENSION
     Route: 048
  4. LISINOPRIL [Concomitant]
     Indication: HYPERTENSION
     Route: 048
  5. UNKNOWN MEDICATION [Concomitant]
     Route: 048
  6. DIAZEPAM [Concomitant]
     Indication: TINNITUS
     Route: 048
  7. ASPIRIN [Concomitant]
     Indication: COAGULOPATHY
     Route: 048
  8. ALBUTEROL [Concomitant]
     Indication: EMPHYSEMA
     Dosage: AS NEEDED
     Route: 055

REACTIONS (4)
  - DYSPNOEA [None]
  - HYPERHIDROSIS [None]
  - INADEQUATE ANALGESIA [None]
  - INCORRECT DRUG ADMINISTRATION DURATION [None]
